FAERS Safety Report 9219707 (Version 1)
Quarter: 2013Q2

REPORT INFORMATION
  Report Type: Spontaneous
  Country: NG (occurrence: NG)
  Receive Date: 20130409
  Receipt Date: 20130409
  Transmission Date: 20140414
  Serious: Yes (Hospitalization)
  Sender: FDA-Public Use
  Company Number: NG-UCBSA-082133

PATIENT
  Age: 17 Year
  Sex: Female

DRUGS (7)
  1. KEPPRA [Suspect]
     Indication: CONVULSION
     Dosage: TOTAL DAILY DOSE: 500 MG
     Route: 048
  2. KEPPRA [Suspect]
     Indication: CONVULSION
     Route: 048
  3. VALPROATE SODIUM [Concomitant]
     Indication: CONVULSION
  4. ISONIAZID [Concomitant]
  5. PYRAZINAMIDE [Concomitant]
  6. ETHAMBUTOL [Concomitant]
     Indication: TUBERCULOSIS
  7. RIFAMPICIN [Concomitant]

REACTIONS (1)
  - Status epilepticus [Recovered/Resolved]
